FAERS Safety Report 7061064-2 (Version None)
Quarter: 2010Q4

REPORT INFORMATION
  Report Type: 
  Country: None (occurrence: None)
  Receive Date: 20101026
  Receipt Date: 20101018
  Transmission Date: 20110411
  Serious: Yes (Other)
  Sender: FDA-Public Use
  Company Number: GR-PFIZER INC-2010131631

PATIENT
  Sex: Male

DRUGS (1)
  1. MEDROL [Suspect]
     Dosage: 8 MG, 1X/DAY
     Route: 048
     Dates: start: 20090101, end: 20101001

REACTIONS (3)
  - ARTHRALGIA [None]
  - JOINT SWELLING [None]
  - MUSCULAR WEAKNESS [None]
